FAERS Safety Report 9026736 (Version 1)
Quarter: 2013Q1

REPORT INFORMATION
  Report Type: Spontaneous
  Country: US (occurrence: None)
  Receive Date: 20130107
  Receipt Date: 20130107
  Transmission Date: 20140127
  Serious: Yes (Other)
  Sender: FDA-Public Use
  Company Number: 2011029437

PATIENT
  Age: 30 Year
  Sex: Female
  Weight: 93.44 kg

DRUGS (15)
  1. HIZENTRA (IMMUNOGLOBULIN HUMAN NORMAL) [Suspect]
     Indication: IMMUNODEFICIENCY COMMON VARIABLE
     Dosage: 1X/WEEK, 3-5 SITES OVER 1.5-2 HOURS
     Dates: start: 20110420
  2. SINGULAIR [Concomitant]
  3. REQUIP (ROPINIROLE HYDROCHLORIDE) [Concomitant]
  4. CELEXA (CITALOPRAM HYDROBROMIDE) [Concomitant]
  5. KEPPRA (LEVETIRACETAM) [Concomitant]
  6. FLEXERIL (CYCLOBENZAPRINE HYDROCHLORIDE) [Concomitant]
  7. PREVACID (LANSOPRAZOLE) [Concomitant]
  8. ASACOL (MESALAZINE) [Concomitant]
  9. ACETAMINOPHEN (PARACETAMOL) [Concomitant]
  10. DIPHENHYDRAMINE (DIPHENHYDRAMINE) [Concomitant]
  11. LIDOCAINE (LIDOCAINE) [Concomitant]
  12. EPINEPHRINE (EPINEPHRINE) [Concomitant]
  13. AZITHROMYCIN (AZITHROMYCIN) [Concomitant]
  14. PREDNISONE (PREDNISONE) [Concomitant]
  15. EPIPEN (EPINEPHRINE) [Concomitant]

REACTIONS (4)
  - Pain [None]
  - Ear infection [None]
  - Fatigue [None]
  - Infusion site infection [None]
